FAERS Safety Report 7871037-5 (Version None)
Quarter: 2011Q4

REPORT INFORMATION
  Report Type: 
  Country: None (occurrence: None)
  Receive Date: 20111029
  Receipt Date: 20110223
  Transmission Date: 20120403
  Serious: No
  Sender: FDA-Public Use
  Company Number: US-AMGEN-USASP2011010358

PATIENT
  Age: 56 Year

DRUGS (1)
  1. ENBREL [Suspect]

REACTIONS (1)
  - FATIGUE [None]
